FAERS Safety Report 13240481 (Version 1)
Quarter: 2017Q1

REPORT INFORMATION
  Report Type: Spontaneous
  Country: US (occurrence: US)
  Receive Date: 20170216
  Receipt Date: 20170216
  Transmission Date: 20170428
  Serious: No
  Sender: FDA-Public Use
  Company Number: US-RELYPSA-RLY2016003670

PATIENT
  Age: 56 Year
  Sex: Male

DRUGS (7)
  1. CALCITROL [Concomitant]
     Active Substance: CALCITRIOL
  2. FOSRENOL [Concomitant]
     Active Substance: LANTHANUM CARBONATE
  3. VELTASSA [Suspect]
     Active Substance: PATIROMER
     Indication: HYPERKALAEMIA
     Dosage: 8.4 G, QD
     Route: 048
     Dates: start: 20160611
  4. TAMSULOSIN [Concomitant]
     Active Substance: TAMSULOSIN
  5. BICARBONATE [Concomitant]
     Active Substance: BICARBONATE ION
  6. AMLODIPINE BENAZEPRIL [Concomitant]
     Active Substance: AMLODIPINE BESYLATE\BENAZEPRIL HYDROCHLORIDE
  7. ATENOLOL. [Concomitant]
     Active Substance: ATENOLOL

REACTIONS (3)
  - Flatulence [Not Recovered/Not Resolved]
  - Drug dose omission [Recovered/Resolved]
  - Abdominal distension [Not Recovered/Not Resolved]

NARRATIVE: CASE EVENT DATE: 201610
